FAERS Safety Report 18731828 (Version 4)
Quarter: 2021Q3

REPORT INFORMATION
  Report Type: Report from Study
  Country: US (occurrence: US)
  Receive Date: 20210112
  Receipt Date: 20210707
  Transmission Date: 20211014
  Serious: Yes (Other)
  Sender: FDA-Public Use
  Company Number: NVSC2021US005895

PATIENT
  Age: 52 Year
  Sex: Female

DRUGS (1)
  1. COSENTYX [Suspect]
     Active Substance: SECUKINUMAB
     Indication: PSORIASIS
     Dosage: 300 MG, EVERY 5 WEEKS THEN EVERY 4 WEEKS
     Route: 058
     Dates: start: 202010

REACTIONS (5)
  - Fungal pharyngitis [Unknown]
  - Product dose omission issue [Unknown]
  - Fungal oesophagitis [Unknown]
  - Bronchitis [Unknown]
  - Dyspepsia [Unknown]

NARRATIVE: CASE EVENT DATE: 202010
